FAERS Safety Report 6543585-1 (Version None)
Quarter: 2010Q1

REPORT INFORMATION
  Report Type: 
  Country: None (occurrence: None)
  Receive Date: 20100119
  Receipt Date: 20100119
  Transmission Date: 20100710
  Serious: Yes (Other)
  Sender: FDA-Public Use
  Company Number: None

PATIENT
  Sex: Male
  Weight: 38.9 kg

DRUGS (1)
  1. CLOFARABINE 20MG/20ML GENZYME [Suspect]
     Indication: ACUTE LYMPHOCYTIC LEUKAEMIA RECURRENT
     Dosage: 50 MG Q24H IV
     Route: 042
     Dates: start: 20100112, end: 20100114

REACTIONS (2)
  - HALLUCINATION, VISUAL [None]
  - MENTAL STATUS CHANGES [None]
